FAERS Safety Report 8024104-X (Version None)
Quarter: 2012Q1

REPORT INFORMATION
  Report Type: 
  Country: None (occurrence: None)
  Receive Date: 20120105
  Receipt Date: 20111012
  Transmission Date: 20120608
  Serious: Yes (Other)
  Sender: FDA-Public Use
  Company Number: US-BAYER-2011-124607

PATIENT
  Sex: Female

DRUGS (1)
  1. MIRENA [Suspect]
     Dosage: 30 MCG/24HR, CONT

REACTIONS (3)
  - DEPRESSION [None]
  - PANIC REACTION [None]
  - ANXIETY [None]
